FAERS Safety Report 24345353 (Version 1)
Quarter: 2024Q3

REPORT INFORMATION
  Report Type: Spontaneous
  Country: FR (occurrence: FR)
  Receive Date: 20240920
  Receipt Date: 20240920
  Transmission Date: 20241017
  Serious: Yes (Other)
  Sender: ASTELLAS
  Company Number: FR-ASTELLAS-2024-AER-007020

PATIENT
  Age: 84 Year
  Sex: Male

DRUGS (3)
  1. TACROLIMUS [Suspect]
     Active Substance: TACROLIMUS
     Indication: Renal transplant
     Route: 065
     Dates: start: 2018
  2. THYMOCYTE IMMUNE GLOBULIN NOS [Concomitant]
     Active Substance: THYMOCYTE IMMUNE GLOBULIN NOS
     Indication: Renal transplant
     Route: 065
     Dates: start: 201805
  3. MYCOPHENOLIC ACID [Concomitant]
     Active Substance: MYCOPHENOLIC ACID
     Indication: Renal transplant
     Route: 065
     Dates: start: 2018

REACTIONS (8)
  - Cytomegalovirus infection reactivation [Unknown]
  - Pyelonephritis [Unknown]
  - Enterococcal infection [Unknown]
  - Lactobacillus infection [Unknown]
  - Urinary tract infection [Unknown]
  - Pyomyositis [Unknown]
  - Osteitis [Unknown]
  - Perineal infection [Unknown]
